FAERS Safety Report 25645142 (Version 2)
Quarter: 2025Q3

REPORT INFORMATION
  Report Type: Spontaneous
  Country: JP (occurrence: JP)
  Receive Date: 20250805
  Receipt Date: 20250827
  Transmission Date: 20251021
  Serious: Yes (Death)
  Sender: ABBVIE
  Company Number: JP-ABBVIE-6399956

PATIENT
  Age: 15 Year
  Sex: Female

DRUGS (1)
  1. RINVOQ [Suspect]
     Active Substance: UPADACITINIB
     Indication: Colitis ulcerative
     Route: 048
     Dates: start: 20250714, end: 20250801

REACTIONS (2)
  - Drowning [Fatal]
  - Mental disorder [Unknown]

NARRATIVE: CASE EVENT DATE: 20250101
